FAERS Safety Report 8516244-3 (Version None)
Quarter: 2012Q3

REPORT INFORMATION
  Report Type: 
  Country: None (occurrence: None)
  Receive Date: 20120717
  Receipt Date: 20120709
  Transmission Date: 20120928
  Serious: Yes (Death, Other)
  Sender: FDA-Public Use
  Company Number: US-BAYER-2012-058474

PATIENT
  Age: 77 Year
  Sex: Male
  Weight: 105 kg

DRUGS (21)
  1. VANCOMYCIN [Concomitant]
     Dosage: 500 MG, UNK
     Route: 042
     Dates: start: 19981204, end: 19981204
  2. HEPARIN [Concomitant]
     Dosage: 54000 U, UNK
     Dates: start: 19981204, end: 19981204
  3. LASIX [Concomitant]
     Dosage: 40 MG, UNK
     Dates: start: 19981204, end: 19981204
  4. LASIX [Concomitant]
     Dosage: 20 MG, PRN
  5. AVAPRO [Concomitant]
     Dosage: 15 MG, QD
  6. LIDOCAINE [Concomitant]
     Dosage: 200 MG, UNK
     Dates: start: 19981204, end: 19981204
  7. VERSED [Concomitant]
     Dosage: 12.5 MG, UNK
     Route: 042
     Dates: start: 19981204, end: 19981204
  8. SOLU-MEDROL [Concomitant]
     Dosage: 1 G, UNK
     Dates: start: 19981204, end: 19981204
  9. NORVASC [Concomitant]
     Dosage: 10 MG, QD
     Route: 048
  10. TRASYLOL [Suspect]
     Dosage: 200 ML BYPASS PRIME
     Route: 042
     Dates: start: 19981204
  11. CEFAZOLIN [Concomitant]
     Dosage: 1 G, UNK
     Dates: start: 19981204, end: 19981204
  12. TEGRETOL [Concomitant]
     Indication: CONVULSION
     Dosage: 400 MG, QD
     Route: 048
  13. TRASYLOL [Suspect]
     Indication: AORTIC VALVE REPLACEMENT
     Dosage: 1 ML INITIAL DOSE
     Route: 042
     Dates: start: 19981204, end: 19981204
  14. TRASYLOL [Suspect]
     Dosage: 200 ML OVER 30 MINUTES FOLLOWED BY 50 ML/HOUR INFUSION
     Route: 042
     Dates: start: 19981204
  15. DOPAMINE HCL [Concomitant]
     Dosage: UNK
     Route: 042
     Dates: start: 19981204
  16. KEFZOL [Concomitant]
     Dosage: 1 G, UNK
     Route: 042
     Dates: start: 19981204, end: 19981204
  17. PROTAMINE SULFATE [Concomitant]
     Dosage: 320 MG, UNK
     Route: 042
     Dates: start: 19981204, end: 19981204
  18. THEOPHYLLINE [Concomitant]
     Dosage: 300 MG, UNK
     Route: 048
  19. HEXABRIX [Concomitant]
     Indication: CATHETERISATION CARDIAC
     Dosage: 200 ML, UNK
     Dates: start: 19981202
  20. SUFENTANIL CITRATE [Concomitant]
     Dosage: UNK
     Route: 042
     Dates: start: 19981204, end: 19981204
  21. NORMOSOL [Concomitant]
     Dosage: 1700 ML, UNK
     Route: 042
     Dates: start: 19981204, end: 19981204

REACTIONS (15)
  - ILEUS [None]
  - GASTROINTESTINAL HAEMORRHAGE [None]
  - SEPSIS [None]
  - RENAL FAILURE [None]
  - BACTERIAL TEST POSITIVE [None]
  - ENTEROBACTER INFECTION [None]
  - RENAL FAILURE CHRONIC [None]
  - ACUTE RESPIRATORY FAILURE [None]
  - BLOOD POTASSIUM INCREASED [None]
  - LABILE BLOOD PRESSURE [None]
  - INTESTINAL PERFORATION [None]
  - ADRENAL INSUFFICIENCY [None]
  - CHOLELITHIASIS [None]
  - OESOPHAGEAL ULCER [None]
  - URINARY TRACT INFECTION FUNGAL [None]
